FAERS Safety Report 4467915-X (Version None)
Quarter: 2004Q4

REPORT INFORMATION
  Report Type: 
  Country: None (occurrence: None)
  Receive Date: 20041004
  Receipt Date: 20040922
  Transmission Date: 20050328
  Serious: Yes (Death)
  Sender: FDA-Public Use
  Company Number: URSO-2004-018

PATIENT
  Age: 65 Year
  Sex: Male

DRUGS (1)
  1. URSO 250 [Suspect]
     Dosage: 300 MG
     Route: 048
     Dates: start: 20040412, end: 20040414

REACTIONS (11)
  - ALANINE AMINOTRANSFERASE INCREASED [None]
  - ASPARTATE AMINOTRANSFERASE INCREASED [None]
  - BLOOD BILIRUBIN INCREASED [None]
  - CHROMATURIA [None]
  - EOSINOPHILIA [None]
  - EXANTHEM [None]
  - HYPERSENSITIVITY [None]
  - INFLUENZA LIKE ILLNESS [None]
  - JAUNDICE [None]
  - PROTHROMBIN TIME PROLONGED [None]
  - PRURITUS [None]
